FAERS Safety Report 21060523 (Version 1)
Quarter: 2022Q3

REPORT INFORMATION
  Report Type: Spontaneous
  Country: US (occurrence: US)
  Receive Date: 20220708
  Receipt Date: 20220708
  Transmission Date: 20221027
  Serious: Yes (Other)
  Sender: FDA-Public Use
  Company Number: US-PFIZER INC-2021591289

PATIENT
  Age: 10 Year
  Sex: Female

DRUGS (2)
  1. XELJANZ [Suspect]
     Active Substance: TOFACITINIB CITRATE
     Indication: Dermatomyositis
     Dosage: 5 MG
     Dates: start: 20210512, end: 20210521
  2. XELJANZ [Suspect]
     Active Substance: TOFACITINIB CITRATE
     Dosage: 5 MG
     Dates: start: 20210521, end: 2022

REACTIONS (2)
  - Off label use [Unknown]
  - Chemotherapy [Unknown]
